FAERS Safety Report 8221605-6 (Version None)
Quarter: 2012Q1

REPORT INFORMATION
  Report Type: 
  Country: None (occurrence: None)
  Receive Date: 20120316
  Receipt Date: 20120228
  Transmission Date: 20120608
  Serious: Yes (Other)
  Sender: FDA-Public Use
  Company Number: 2012P1006721

PATIENT
  Age: 58 Year
  Sex: Female

DRUGS (4)
  1. CLOTRIMAZOLE [Suspect]
     Indication: FUNGAL SKIN INFECTION
     Dosage: X1;OPH
     Route: 047
     Dates: start: 20120219, end: 20120219
  2. THYROID MEDICINE [Concomitant]
  3. VITAMIN TAB [Concomitant]
  4. CELEBREX [Concomitant]

REACTIONS (5)
  - OCULAR HYPERAEMIA [None]
  - EYE SWELLING [None]
  - EYE IRRITATION [None]
  - ACCIDENTAL EXPOSURE [None]
  - CHEMICAL INJURY [None]
